FAERS Safety Report 4449669-6 (Version None)
Quarter: 2004Q3

REPORT INFORMATION
  Report Type: 
  Country: None (occurrence: None)
  Receive Date: 20040913
  Receipt Date: 20040901
  Transmission Date: 20050211
  Serious: Yes (Life-Threatening)
  Sender: FDA-Public Use
  Company Number: 2004231725JP

PATIENT
  Age: 68 Year
  Sex: Male

DRUGS (2)
  1. CLINDAMYCIN HCL [Suspect]
     Indication: PNEUMONIA ASPIRATION
     Dosage: 600 MG, DAILY IV; 1200 MG, DAILY, IV
     Route: 042
     Dates: start: 20040826, end: 20040826
  2. CLINDAMYCIN HCL [Suspect]
     Indication: PNEUMONIA ASPIRATION
     Dosage: 600 MG, DAILY IV; 1200 MG, DAILY, IV
     Route: 042
     Dates: start: 20040827, end: 20040827

REACTIONS (1)
  - LIVER DISORDER [None]
